FAERS Safety Report 7072584-9 (Version None)
Quarter: 2010Q4

REPORT INFORMATION
  Report Type: 
  Country: None (occurrence: None)
  Receive Date: 20101029
  Receipt Date: 20100521
  Transmission Date: 20110411
  Serious: No
  Sender: FDA-Public Use
  Company Number: A0844714A

PATIENT
  Age: 79 Year
  Sex: Male

DRUGS (7)
  1. ADVAIR DISKUS 100/50 [Suspect]
     Indication: COUGH
     Dosage: 1PUFF TWICE PER DAY
     Route: 055
     Dates: start: 20090101, end: 20091201
  2. UROXATRAL [Concomitant]
  3. AVODART [Concomitant]
  4. LUMIGAN [Concomitant]
  5. DIOVAN [Concomitant]
  6. VITAMIN D3 [Concomitant]
  7. ZYFLAMEND [Concomitant]

REACTIONS (9)
  - ANGER [None]
  - BLOOD URINE PRESENT [None]
  - COUGH [None]
  - DYSPNOEA [None]
  - ILL-DEFINED DISORDER [None]
  - PAIN [None]
  - THROAT IRRITATION [None]
  - URINARY TRACT INFECTION [None]
  - URINE OUTPUT INCREASED [None]
